FAERS Safety Report 7225051-3 (Version None)
Quarter: 2011Q1

REPORT INFORMATION
  Report Type: 
  Country: None (occurrence: None)
  Receive Date: 20110107
  Receipt Date: 20110107
  Transmission Date: 20110831
  Serious: Yes (Other)
  Sender: FDA-Public Use
  Company Number: None

PATIENT
  Age: 43 Year
  Sex: Male
  Weight: 113.3993 kg

DRUGS (1)
  1. XANAX [Suspect]
     Indication: PAIN
     Dosage: 2MG FOUR TIMES A DAY
     Dates: start: 20010815, end: 20100105

REACTIONS (3)
  - LEGAL PROBLEM [None]
  - IMPAIRED DRIVING ABILITY [None]
  - TOXICITY TO VARIOUS AGENTS [None]
